FAERS Safety Report 21809736 (Version 1)
Quarter: 2023Q1

REPORT INFORMATION
  Report Type: Spontaneous
  Country: US (occurrence: None)
  Receive Date: 20230103
  Receipt Date: 20230103
  Transmission Date: 20230417
  Serious: No
  Sender: FDA-Public Use
  Company Number: US-Encube-000251

PATIENT
  Age: 81 Year
  Sex: Male

DRUGS (12)
  1. DICLOFENAC SODIUM [Suspect]
     Active Substance: DICLOFENAC SODIUM
     Indication: Back pain
     Dates: start: 20221221, end: 20221223
  2. ASPIRIN [Concomitant]
     Active Substance: ASPIRIN
  3. ALLOPURINOL [Concomitant]
     Active Substance: ALLOPURINOL
  4. VITAMIN C [Concomitant]
     Active Substance: ASCORBIC ACID
  5. AMLODIPINE [Concomitant]
     Active Substance: AMLODIPINE BESYLATE
  6. ROSUVASTATIN [Concomitant]
     Active Substance: ROSUVASTATIN
  7. LOVASTATIN [Concomitant]
     Active Substance: LOVASTATIN
  8. METFORMIN [Concomitant]
     Active Substance: METFORMIN HYDROCHLORIDE
  9. HYDROCHLOROTHIAZIDE [Concomitant]
     Active Substance: HYDROCHLOROTHIAZIDE
  10. INSULIN NOS [Concomitant]
     Active Substance: INSULIN NOS
  11. TAMSULIN [Concomitant]
  12. GLYCOPYRROLATE [Concomitant]
     Active Substance: GLYCOPYRROLATE

REACTIONS (3)
  - Diarrhoea [Recovered/Resolved]
  - Off label use [Unknown]
  - Product physical consistency issue [Unknown]

NARRATIVE: CASE EVENT DATE: 20221221
